FAERS Safety Report 16072831 (Version 1)
Quarter: 2019Q1

REPORT INFORMATION
  Report Type: Spontaneous
  Country: US (occurrence: US)
  Receive Date: 20190213
  Receipt Date: 20190213
  Transmission Date: 20190418
  Serious: No
  Sender: FDA-Public Use
  Company Number: None

PATIENT
  Age: 57 Year
  Sex: Female

DRUGS (1)
  1. AZATHIOPRINE. [Suspect]
     Active Substance: AZATHIOPRINE
     Route: 048
     Dates: start: 201901, end: 20190201

REACTIONS (2)
  - Alopecia [None]
  - Feeling abnormal [None]

NARRATIVE: CASE EVENT DATE: 20190213
